FAERS Safety Report 4293347-3 (Version None)
Quarter: 2004Q1

REPORT INFORMATION
  Report Type: 
  Country: None (occurrence: None)
  Receive Date: 20040209
  Receipt Date: 20031030
  Transmission Date: 20041129
  Serious: No
  Sender: FDA-Public Use
  Company Number: RPH 75/03

PATIENT
  Sex: Female

DRUGS (1)
  1. MDP-BRACCO [Suspect]
     Indication: BONE SCAN
     Dosage: SINGLE, BONE SCAN, IV
     Route: 042
     Dates: start: 20031022

REACTIONS (2)
  - RASH [None]
  - SKIN ULCER [None]
